FAERS Safety Report 7787306-3 (Version None)
Quarter: 2011Q3

REPORT INFORMATION
  Report Type: 
  Country: None (occurrence: None)
  Receive Date: 20110929
  Receipt Date: 20110920
  Transmission Date: 20111222
  Serious: Yes (Hospitalization)
  Sender: FDA-Public Use
  Company Number: PHHY2011US83770

PATIENT
  Age: 86 Year
  Sex: Male

DRUGS (2)
  1. SULFAMETHOXAZOLE AND TRIMETHOPRIM [Suspect]
     Indication: URINARY TRACT INFECTION
     Dosage: UNK
     Dates: start: 20090101
  2. HYDROCHLOROTHIAZIDE [Suspect]

REACTIONS (10)
  - FATIGUE [None]
  - BLOOD OSMOLARITY DECREASED [None]
  - PYREXIA [None]
  - BLOOD UREA INCREASED [None]
  - MENTAL STATUS CHANGES [None]
  - HYPONATRAEMIA [None]
  - ASTHENIA [None]
  - DECREASED APPETITE [None]
  - CHILLS [None]
  - BLOOD CREATININE INCREASED [None]
